FAERS Safety Report 15982233 (Version 2)
Quarter: 2019Q1

REPORT INFORMATION
  Report Type: Spontaneous
  Country: IT (occurrence: IT)
  Receive Date: 20190219
  Receipt Date: 20190221
  Transmission Date: 20190418
  Serious: Yes (Life-Threatening, Hospitalization, Other)
  Sender: FDA-Public Use
  Company Number: IT-PFIZER INC-2019074215

PATIENT
  Age: 78 Year
  Sex: Male

DRUGS (1)
  1. TRIATEC (RAMIPRIL) [Suspect]
     Active Substance: RAMIPRIL
     Dosage: 5 MG, DAILY
     Route: 048

REACTIONS (3)
  - Abdominal pain upper [Unknown]
  - Pancreatitis necrotising [None]
  - Pancreatitis haemorrhagic [Unknown]

NARRATIVE: CASE EVENT DATE: 20190127
